FAERS Safety Report 15483627 (Version 3)
Quarter: 2018Q4

REPORT INFORMATION
  Report Type: Report from Study
  Country: None (occurrence: FR)
  Receive Date: 20181010
  Receipt Date: 20181119
  Transmission Date: 20190205
  Serious: Yes (Hospitalization, Other)
  Sender: FDA-Public Use
  Company Number: FR-ABBVIE-18S-056-2514247-00

PATIENT
  Age: 65 Year
  Sex: Male

DRUGS (1)
  1. DUODOPA [Suspect]
     Active Substance: CARBIDOPA\LEVODOPA
     Indication: PARKINSON^S DISEASE
     Dosage: MD : 5 ML, ED: 3 ML, CONTINOUS FLOW RATE DURING THE DAY (07:00 AM  10:00 PM) : 1.9 ML/H
     Route: 050
     Dates: start: 20150518

REACTIONS (3)
  - Subcutaneous abscess [Not Recovered/Not Resolved]
  - Fistula [Not Recovered/Not Resolved]
  - Fall [Unknown]
